FAERS Safety Report 15450645 (Version 8)
Quarter: 2020Q3

REPORT INFORMATION
  Report Type: Spontaneous
  Country: US (occurrence: US)
  Receive Date: 20181001
  Receipt Date: 20200713
  Transmission Date: 20201102
  Serious: Yes (Other)
  Sender: FDA-Public Use
  Company Number: US-SA-2018SA271139

PATIENT

DRUGS (4)
  1. KEVZARA [Suspect]
     Active Substance: SARILUMAB
     Indication: RHEUMATOID ARTHRITIS
     Dosage: 200 MG, QOW
     Route: 058
     Dates: start: 20180831
  2. KEVZARA [Suspect]
     Active Substance: SARILUMAB
     Dosage: 200 MG, QOW
     Route: 058
     Dates: start: 20180901
  3. TOBRAMYCIN. [Suspect]
     Active Substance: TOBRAMYCIN
  4. KEVZARA [Suspect]
     Active Substance: SARILUMAB
     Dosage: 200 MG, QOW
     Route: 058
     Dates: start: 20180926

REACTIONS (7)
  - Rheumatoid arthritis [Not Recovered/Not Resolved]
  - Cough [Unknown]
  - Product dose omission issue [Not Recovered/Not Resolved]
  - Erythema [Unknown]
  - Rash pustular [Unknown]
  - Alopecia [Unknown]
  - Bronchitis [Unknown]

NARRATIVE: CASE EVENT DATE: 20180924
